FAERS Safety Report 15423109 (Version 1)
Quarter: 2018Q3

REPORT INFORMATION
  Report Type: Spontaneous
  Country: SE (occurrence: SE)
  Receive Date: 20180925
  Receipt Date: 20180925
  Transmission Date: 20181010
  Serious: Yes (Life-Threatening, Hospitalization, Disabling)
  Sender: FDA-Public Use
  Company Number: SE-TEVA-2018-SE-958120

PATIENT
  Age: 53 Year
  Sex: Male
  Weight: 130 kg

DRUGS (8)
  1. AMLODIPINE [Suspect]
     Active Substance: AMLODIPINE BESYLATE
     Indication: CARDIAC FAILURE
     Dosage: 5 MILLIGRAM DAILY; 5MG/DAY
     Route: 065
     Dates: end: 20180817
  2. EPLERENONE. [Concomitant]
     Active Substance: EPLERENONE
     Route: 065
  3. TESTOSTERONE. [Concomitant]
     Active Substance: TESTOSTERONE
     Route: 065
  4. MIRTAZAPINE. [Concomitant]
     Active Substance: MIRTAZAPINE
     Route: 065
  5. SOMATROPIN. [Concomitant]
     Active Substance: SOMATROPIN
     Route: 065
  6. ENTRESTO [Concomitant]
     Active Substance: SACUBITRIL\VALSARTAN
     Route: 065
     Dates: end: 20180817
  7. OXYCODONE [Concomitant]
     Active Substance: OXYCODONE
     Route: 065
  8. ALVEDON [Concomitant]
     Active Substance: ACETAMINOPHEN
     Route: 065

REACTIONS (11)
  - Pain [Unknown]
  - Pigmentation disorder [Unknown]
  - Personality disorder [Unknown]
  - Malaise [Unknown]
  - Vasculitis [Unknown]
  - Asthenia [Unknown]
  - Pruritus [Unknown]
  - Joint swelling [Unknown]
  - Anxiety [Unknown]
  - Suicidal ideation [Unknown]
  - Hyperhidrosis [Unknown]

NARRATIVE: CASE EVENT DATE: 20170101
